FAERS Safety Report 15222396 (Version 1)
Quarter: 2018Q3

REPORT INFORMATION
  Report Type: Spontaneous
  Country: US (occurrence: US)
  Receive Date: 20180705
  Receipt Date: 20180705
  Transmission Date: 20181010
  Serious: Yes (Hospitalization)
  Sender: FDA-Public Use
  Company Number: None

PATIENT
  Age: 68 Year
  Sex: Male
  Weight: 107.5 kg

DRUGS (2)
  1. CETUXIMSB [Concomitant]
     Dates: start: 20180130
  2. CETUXIMAB. [Suspect]
     Active Substance: CETUXIMAB
     Indication: TONGUE NEOPLASM MALIGNANT STAGE UNSPECIFIED
     Dosage: ?          OTHER FREQUENCY:ONCE;?
     Route: 042
     Dates: start: 20180130

REACTIONS (4)
  - Infusion related reaction [None]
  - Blood pressure decreased [None]
  - Pulse absent [None]
  - Unresponsive to stimuli [None]

NARRATIVE: CASE EVENT DATE: 20180130
